FAERS Safety Report 6998156-X (Version None)
Quarter: 2010Q3

REPORT INFORMATION
  Report Type: 
  Country: None (occurrence: None)
  Receive Date: 20100920
  Receipt Date: 20090929
  Transmission Date: 20110219
  Serious: Yes (Other)
  Sender: FDA-Public Use
  Company Number: US-ASTRAZENECA-2006UW09106

PATIENT
  Age: 39 Year
  Sex: Female
  Weight: 93 kg

DRUGS (6)
  1. SEROQUEL [Suspect]
     Indication: DEPRESSION
     Dosage: 100MG
     Route: 048
     Dates: start: 20010101, end: 20050101
  2. SEROQUEL [Suspect]
     Indication: INSOMNIA
     Dosage: 100MG
     Route: 048
     Dates: start: 20010101, end: 20050101
  3. SEROQUEL [Suspect]
     Dosage: 100MG TO 200MG
     Route: 048
     Dates: start: 20030301, end: 20051001
  4. SEROQUEL [Suspect]
     Dosage: 100MG TO 200MG
     Route: 048
     Dates: start: 20030301, end: 20051001
  5. RISPERDAL [Suspect]
     Indication: DEPRESSION
     Route: 065
     Dates: start: 20030301, end: 20050201
  6. GEODON [Concomitant]

REACTIONS (3)
  - DIABETIC COMA [None]
  - TYPE 2 DIABETES MELLITUS [None]
  - VISUAL IMPAIRMENT [None]
